FAERS Safety Report 23780563 (Version 1)
Quarter: 2024Q2

REPORT INFORMATION
  Report Type: Spontaneous
  Country: US (occurrence: US)
  Receive Date: 20240425
  Receipt Date: 20240425
  Transmission Date: 20240715
  Serious: Yes (Hospitalization, Other)
  Sender: FDA-Public Use
  Company Number: US-HALEON-2169306

PATIENT
  Age: 66 Year
  Sex: Female

DRUGS (1)
  1. TUMS [Suspect]
     Active Substance: CALCIUM CARBONATE
     Indication: Product used for unknown indication
     Dosage: DAILY

REACTIONS (8)
  - Milk-alkali syndrome [Recovering/Resolving]
  - Hypercalcaemia [Recovering/Resolving]
  - Renal cyst [Recovering/Resolving]
  - Thirst [Recovering/Resolving]
  - Acute kidney injury [Recovering/Resolving]
  - Asthenia [Recovering/Resolving]
  - Oliguria [Recovering/Resolving]
  - Decreased appetite [Recovering/Resolving]
